FAERS Safety Report 6530286-9 (Version None)
Quarter: 2010Q1

REPORT INFORMATION
  Report Type: 
  Country: None (occurrence: None)
  Receive Date: 20100107
  Receipt Date: 20100101
  Transmission Date: 20100710
  Serious: Yes (Death)
  Sender: FDA-Public Use
  Company Number: US-ROCHE-677889

PATIENT

DRUGS (3)
  1. TRASTUZUMAB [Suspect]
     Indication: BREAST CANCER METASTATIC
     Dosage: THIS IS THE LOADING DOSE. FREQ: 90 MIN OVER DAY ONE.
     Route: 042
     Dates: start: 20090402
  2. TRASTUZUMAB [Suspect]
     Dosage: CYCLE: 3 WEEKS
     Route: 042
  3. BLINDED BEVACIZUMAB [Suspect]
     Indication: BREAST CANCER METASTATIC
     Route: 042
     Dates: start: 20090402

REACTIONS (1)
  - INFECTION [None]
